FAERS Safety Report 6126362-5 (Version None)
Quarter: 2009Q1

REPORT INFORMATION
  Report Type: 
  Country: None (occurrence: None)
  Receive Date: 20090320
  Receipt Date: 20090316
  Transmission Date: 20090719
  Serious: Yes (Life-Threatening)
  Sender: FDA-Public Use
  Company Number: JP-AVENTIS-200910743JP

PATIENT
  Age: 56 Year
  Sex: Male

DRUGS (5)
  1. ALLEGRA [Suspect]
     Route: 048
  2. ALESION [Suspect]
  3. HOMOCLOMIN                         /00357801/ [Suspect]
  4. NEOMALLERMIN-TR [Suspect]
  5. TAGAMET [Suspect]

REACTIONS (1)
  - BRUGADA SYNDROME [None]
